FAERS Safety Report 5515362-1 (Version None)
Quarter: 2007Q4

REPORT INFORMATION
  Report Type: 
  Country: None (occurrence: None)
  Receive Date: 20071109
  Receipt Date: 20071101
  Transmission Date: 20080405
  Serious: Yes (Hospitalization, Other)
  Sender: FDA-Public Use
  Company Number: 2007US002530

PATIENT
  Sex: Male

DRUGS (6)
  1. PROGRAF [Suspect]
     Indication: HEART TRANSPLANT
     Dosage: 10 MG, BID, ORAL
     Route: 048
  2. PROGRAF [Suspect]
     Dosage: IV BOLUS
     Route: 040
  3. PROGRAF [Suspect]
     Dosage: 9 MG, BID, ORAL
     Route: 048
     Dates: start: 20071009
  4. TRICOR [Suspect]
     Indication: DRUG USE FOR UNKNOWN INDICATION
     Dates: start: 20070401, end: 20070601
  5. CELLCEPT [Concomitant]
  6. CORTICOSTEROIDS [Concomitant]

REACTIONS (3)
  - DRUG INTERACTION [None]
  - DRUG LEVEL FLUCTUATING [None]
  - HEART TRANSPLANT REJECTION [None]
